FAERS Safety Report 12998783 (Version 2)
Quarter: 2016Q4

REPORT INFORMATION
  Report Type: Report from Study
  Country: None (occurrence: TR)
  Receive Date: 20161205
  Receipt Date: 20161214
  Transmission Date: 20170207
  Serious: Yes (Hospitalization)
  Sender: FDA-Public Use
  Company Number: TR-ABBVIE-16K-161-1798942-00

PATIENT
  Age: 80 Year
  Sex: Female
  Weight: 53 kg

DRUGS (6)
  1. DUODOPA [Suspect]
     Active Substance: CARBIDOPA\LEVODOPA
     Route: 050
     Dates: start: 201612
  2. LEVODOPA/CARBIDOPA [Concomitant]
     Active Substance: CARBIDOPA\LEVODOPA
     Indication: PRODUCT USED FOR UNKNOWN INDICATION
     Route: 048
  3. SEROQUEL [Concomitant]
     Active Substance: QUETIAPINE FUMARATE
     Indication: PARKINSON^S DISEASE
     Dates: end: 20161130
  4. NUTRISON PEPTISORB MAMA [Concomitant]
     Indication: DYSPHAGIA
     Dates: start: 20151229, end: 20161130
  5. DEPAKIN [Concomitant]
     Active Substance: VALPROATE SODIUM
     Indication: EPILEPSY
     Dates: start: 201511, end: 20161130
  6. DUODOPA [Suspect]
     Active Substance: CARBIDOPA\LEVODOPA
     Indication: PARKINSON^S DISEASE
     Dosage: MORNING DOSE: 5.0 ML; CONTINUOUS DOSE: 3.20 ML; EXTRA DOSE: 1.80 ML
     Route: 050
     Dates: start: 20141216, end: 20161130

REACTIONS (5)
  - Tachycardia [Recovered/Resolved]
  - Dyslipidaemia [Unknown]
  - Arrhythmia [Recovered/Resolved]
  - Hypertension [Recovered/Resolved]
  - Device occlusion [Unknown]

NARRATIVE: CASE EVENT DATE: 20161130
